FAERS Safety Report 8529911-2 (Version None)
Quarter: 2012Q3

REPORT INFORMATION
  Report Type: 
  Country: None (occurrence: None)
  Receive Date: 20120723
  Receipt Date: 20120711
  Transmission Date: 20120928
  Serious: Yes (Hospitalization, Other)
  Sender: FDA-Public Use
  Company Number: CH-ELI_LILLY_AND_COMPANY-CH201207004026

PATIENT
  Sex: Male
  Weight: 78.8 kg

DRUGS (14)
  1. OXAZEPAM [Concomitant]
     Dosage: UNK
  2. CONCOR [Concomitant]
  3. CISPLATIN [Suspect]
     Indication: NON-SMALL CELL LUNG CANCER
     Dosage: 150 MG, UNKNOWN
     Route: 042
     Dates: start: 20110823, end: 20110823
  4. PEMETREXED [Suspect]
     Indication: NON-SMALL CELL LUNG CANCER
     Dosage: 680 MG, UNKNOWN
     Route: 042
     Dates: start: 20110823
  5. PANTOPRAZOLE [Concomitant]
  6. VITARUBIN [Concomitant]
     Dosage: 1000 UG, EEVRY 9 WEEKS
  7. CARBOPLATIN [Suspect]
     Indication: NON-SMALL CELL LUNG CANCER
     Dosage: 500 MG, UNKNOWN
     Route: 042
     Dates: start: 20110914
  8. TORSEMIDE [Concomitant]
  9. MOVIPREP [Concomitant]
  10. BEVACIZUMAB [Suspect]
     Indication: NON-SMALL CELL LUNG CANCER
     Dosage: 580 DF, UNKNOWN
     Route: 042
     Dates: start: 20110823
  11. SERTRALINE HYDROCHLORIDE [Concomitant]
  12. RAMIPRIL + HIDROCLOROTIAZIDA [Concomitant]
  13. INSULIN NORDISK MIXTARD (PORK) [Concomitant]
  14. AMLODIPIN                          /00972402/ [Concomitant]

REACTIONS (6)
  - VOMITING [None]
  - FALL [None]
  - FATIGUE [None]
  - RENAL FAILURE ACUTE [None]
  - DIZZINESS [None]
  - DEHYDRATION [None]
